FAERS Safety Report 6839939-6 (Version None)
Quarter: 2010Q2

REPORT INFORMATION
  Report Type: 
  Country: None (occurrence: None)
  Receive Date: 20100629
  Receipt Date: 20100303
  Transmission Date: 20101027
  Serious: Yes (Other)
  Sender: FDA-Public Use
  Company Number: US-WYE-H13968810

PATIENT
  Age: 72 Year
  Sex: Female
  Weight: 88.53 kg

DRUGS (5)
  1. PRISTIQ [Suspect]
     Indication: DEPRESSION
     Dosage: ORAL
     Route: 048
  2. ADALAT CC [Concomitant]
  3. LISINOPRIL [Concomitant]
  4. PREMPRO [Concomitant]
  5. CLARITIN [Concomitant]

REACTIONS (2)
  - CHROMATURIA [None]
  - MELAENA [None]
